FAERS Safety Report 8357834-0 (Version None)
Quarter: 2012Q2

REPORT INFORMATION
  Report Type: 
  Country: None (occurrence: None)
  Receive Date: 20120514
  Receipt Date: 20110823
  Transmission Date: 20120825
  Serious: Yes (Other)
  Sender: FDA-Public Use
  Company Number: US-TEVA-2011004430

PATIENT
  Sex: Female
  Weight: 83.99 kg

DRUGS (4)
  1. VITAMIN D [Concomitant]
     Dates: start: 20100101
  2. NUVIGIL [Suspect]
     Indication: HYPERSOMNIA
     Route: 048
     Dates: start: 20110701
  3. LEVOTHYROXINE SODIUM [Concomitant]
     Dates: start: 19980101
  4. LEXAPRO [Concomitant]
     Dates: start: 20090101

REACTIONS (5)
  - FLUID INTAKE REDUCED [None]
  - NAUSEA [None]
  - DECREASED APPETITE [None]
  - DEPRESSION [None]
  - HEADACHE [None]
